FAERS Safety Report 22157010 (Version 1)
Quarter: 2023Q1

REPORT INFORMATION
  Report Type: Report from Study
  Country: DO (occurrence: DO)
  Receive Date: 20230330
  Receipt Date: 20230330
  Transmission Date: 20230418
  Serious: Yes (Other)
  Sender: FDA-Public Use
  Company Number: DO-JNJFOC-20230363071

PATIENT
  Age: 71 Year
  Sex: Male
  Weight: 74 kg

DRUGS (2)
  1. BORTEZOMIB [Suspect]
     Active Substance: BORTEZOMIB
     Indication: Plasma cell myeloma
     Dosage: UNK
     Route: 065
  2. DARATUMUMAB [Suspect]
     Active Substance: DARATUMUMAB
     Indication: Plasma cell myeloma
     Dosage: UNK
     Route: 042
     Dates: start: 20210917

REACTIONS (1)
  - Plasma cell myeloma [Unknown]

NARRATIVE: CASE EVENT DATE: 20230301
